FAERS Safety Report 7832647-4 (Version None)
Quarter: 2011Q4

REPORT INFORMATION
  Report Type: 
  Country: None (occurrence: None)
  Receive Date: 20111024
  Receipt Date: 20111019
  Transmission Date: 20120403
  Serious: No
  Sender: FDA-Public Use
  Company Number: US-BIOGENIDEC-2011BI037303

PATIENT
  Sex: Male

DRUGS (1)
  1. TYSABRI [Suspect]
     Indication: MULTIPLE SCLEROSIS
     Route: 042
     Dates: start: 20091006

REACTIONS (6)
  - INFLUENZA [None]
  - AMNESIA [None]
  - MULTIPLE SCLEROSIS [None]
  - MEMORY IMPAIRMENT [None]
  - VISION BLURRED [None]
  - CATARACT OPERATION [None]
